FAERS Safety Report 7409657-4 (Version None)
Quarter: 2011Q1

REPORT INFORMATION
  Report Type: 
  Country: None (occurrence: None)
  Receive Date: 20110301
  Receipt Date: 20100521
  Transmission Date: 20110831
  Serious: Yes (Other)
  Sender: FDA-Public Use
  Company Number: RB-09812-2010

PATIENT
  Age: 28 Year
  Sex: Female

DRUGS (2)
  1. XANAX [Suspect]
     Indication: PRODUCT USED FOR UNKNOWN INDICATION
  2. SUBOXONE [Suspect]
     Indication: DRUG DEPENDENCE
     Dosage: (16 MG SUBLINGUAL)
     Route: 060
     Dates: start: 20091201

REACTIONS (1)
  - OVERDOSE [None]
